FAERS Safety Report 5069873-6 (Version None)
Quarter: 2006Q3

REPORT INFORMATION
  Report Type: 
  Country: None (occurrence: None)
  Receive Date: 20060717
  Receipt Date: 20060630
  Transmission Date: 20061208
  Serious: Yes (Hospitalization)
  Sender: FDA-Public Use
  Company Number: 2006BH011715

PATIENT
  Age: 38 Year
  Sex: Male
  Weight: 80 kg

DRUGS (30)
  1. ADVATE (OCTOCOG ALFA) [Suspect]
     Indication: FACTOR VIII DEFICIENCY
     Dosage: 2000 IU; ONCE; IV; SEE IMAGE
     Route: 042
     Dates: start: 20050526, end: 20050526
  2. ADVATE (OCTOCOG ALFA) [Suspect]
     Indication: FACTOR VIII DEFICIENCY
     Dosage: 2000 IU; ONCE; IV; SEE IMAGE
     Route: 042
     Dates: start: 20050608, end: 20050608
  3. ADVATE (OCTOCOG ALFA) [Suspect]
     Indication: FACTOR VIII DEFICIENCY
     Dosage: 2000 IU; ONCE; IV; SEE IMAGE
     Route: 042
     Dates: start: 20050619, end: 20050619
  4. ADVATE (OCTOCOG ALFA) [Suspect]
     Indication: FACTOR VIII DEFICIENCY
     Dosage: 2000 IU; ONCE; IV; SEE IMAGE
     Route: 042
     Dates: start: 20050624, end: 20050624
  5. ADVATE (OCTOCOG ALFA) [Suspect]
     Indication: FACTOR VIII DEFICIENCY
     Dosage: 2000 IU; ONCE; IV; SEE IMAGE
     Route: 042
     Dates: start: 20050717, end: 20050717
  6. ADVATE (OCTOCOG ALFA) [Suspect]
     Indication: FACTOR VIII DEFICIENCY
     Dosage: 2000 IU; ONCE; IV; SEE IMAGE
     Route: 042
     Dates: start: 20051202, end: 20051203
  7. ADVATE (OCTOCOG ALFA) [Suspect]
     Indication: FACTOR VIII DEFICIENCY
     Dosage: 2000 IU; ONCE; IV
     Route: 042
     Dates: start: 20050801, end: 20050801
  8. ADVATE (OCTOCOG ALFA) [Suspect]
     Indication: FACTOR VIII DEFICIENCY
     Dosage: 2000 IU; ONCE; IV; SEE IMAGE
     Route: 042
     Dates: start: 20050906, end: 20050913
  9. ADVATE (OCTOCOG ALFA) [Suspect]
     Indication: FACTOR VIII DEFICIENCY
     Dosage: 2000 IU; ONCE; IV; SEE IMAGE
     Route: 042
     Dates: start: 20051205, end: 20051207
  10. ADVATE (OCTOCOG ALFA) [Suspect]
     Indication: FACTOR VIII DEFICIENCY
     Dosage: 3000 IU; ONCE; IV
     Route: 042
     Dates: start: 20051213, end: 20051213
  11. ADVATE (OCTOCOG ALFA) [Suspect]
     Indication: FACTOR VIII DEFICIENCY
     Dosage: 6000 IU; ONCE; IV; SEE IMAGE
     Route: 042
     Dates: start: 20051214, end: 20051214
  12. ADVATE (OCTOCOG ALFA) [Suspect]
     Indication: FACTOR VIII DEFICIENCY
     Dosage: 6000 IU; ONCE; IV; SEE IMAGE
     Route: 042
     Dates: start: 20051215, end: 20051215
  13. ADVATE (OCTOCOG ALFA) [Suspect]
     Indication: FACTOR VIII DEFICIENCY
     Dosage: 6000 IU; ONCE; IV; SEE IMAGE
     Route: 042
     Dates: start: 20051216, end: 20051216
  14. ADVATE (OCTOCOG ALFA) [Suspect]
     Indication: FACTOR VIII DEFICIENCY
     Dosage: 6000 IU; ONCE; IV; SEE IMAGE
     Route: 042
     Dates: start: 20051218, end: 20051218
  15. ADVATE (OCTOCOG ALFA) [Suspect]
     Indication: FACTOR VIII DEFICIENCY
     Dosage: 6000 IU; ONCE; IV; SEE IMAGE
     Route: 042
     Dates: start: 20051219, end: 20051219
  16. ADVATE (OCTOCOG ALFA) [Suspect]
     Indication: FACTOR VIII DEFICIENCY
     Dosage: 6000 IU; ONCE; IV; SEE IMAGE
     Route: 042
     Dates: start: 20051224, end: 20051225
  17. ADVATE (OCTOCOG ALFA) [Suspect]
     Indication: FACTOR VIII DEFICIENCY
     Dosage: 4000 IU; ONCE; IV; SEE IMAGE
     Route: 042
     Dates: start: 20051217, end: 20051217
  18. ADVATE (OCTOCOG ALFA) [Suspect]
     Indication: FACTOR VIII DEFICIENCY
     Dosage: 4000 IU; ONCE; IV; SEE IMAGE
     Route: 042
     Dates: start: 20051220, end: 20051223
  19. ADVATE (OCTOCOG ALFA) [Suspect]
     Indication: FACTOR VIII DEFICIENCY
     Dosage: 4000 IU; ONCE; IV; SEE IMAGE
     Route: 042
     Dates: start: 20051226, end: 20051226
  20. ADVATE (OCTOCOG ALFA) [Suspect]
     Indication: FACTOR VIII DEFICIENCY
     Dosage: 4000 IU; ONCE; IV; SEE IMAGE
     Route: 042
     Dates: start: 20060114, end: 20060114
  21. ADVATE (OCTOCOG ALFA) [Suspect]
     Indication: FACTOR VIII DEFICIENCY
     Dosage: 2000 IU; EVERY DAY; IV; SEE IMAGE
     Route: 042
     Dates: start: 20051230, end: 20051231
  22. ADVATE (OCTOCOG ALFA) [Suspect]
     Indication: FACTOR VIII DEFICIENCY
     Dosage: 2000 IU; EVERY DAY; IV; SEE IMAGE
     Route: 042
     Dates: start: 20060101, end: 20060113
  23. ADVATE (OCTOCOG ALFA) [Suspect]
     Indication: FACTOR VIII DEFICIENCY
     Dosage: 2000 IU; EVERY DAY; IV; SEE IMAGE
     Route: 042
     Dates: start: 20060307, end: 20060308
  24. ADVATE (OCTOCOG ALFA) [Suspect]
     Indication: FACTOR VIII DEFICIENCY
     Dosage: 2000 IU; EVERY DAY; IV; SEE IMAGE
     Route: 042
     Dates: start: 20060309, end: 20060309
  25. ADVATE (OCTOCOG ALFA) [Suspect]
     Indication: FACTOR VIII DEFICIENCY
     Dosage: 2000 IU; EVERY DAY; IV; SEE IMAGE
     Route: 042
     Dates: start: 20060310, end: 20060310
  26. ADVATE (OCTOCOG ALFA) [Suspect]
     Indication: FACTOR VIII DEFICIENCY
     Dosage: 4000 IU; EVERY DAY; IV
     Route: 042
     Dates: start: 20060310, end: 20060328
  27. KALETRA [Concomitant]
  28. COMBIVIR [Concomitant]
  29. LOSEC /NET/ [Concomitant]
  30. SAROTEN [Concomitant]

REACTIONS (3)
  - HEADACHE [None]
  - MEDICAL DEVICE COMPLICATION [None]
  - PERITONEAL CYST [None]
